FAERS Safety Report 10205290 (Version 5)
Quarter: 2014Q3

REPORT INFORMATION
  Report Type: Spontaneous
  Country: AU (occurrence: AU)
  Receive Date: 20140529
  Receipt Date: 20140901
  Transmission Date: 20150326
  Serious: Yes (Life-Threatening, Hospitalization, Other)
  Sender: FDA-Public Use
  Company Number: AU-009507513-1404AUS012768

PATIENT
  Age: 18 Year
  Sex: Male
  Weight: 70 kg

DRUGS (4)
  1. PROPOFOL. [Concomitant]
     Active Substance: PROPOFOL
     Dosage: UNK
  2. REMIFENTANIL HYDROCHLORIDE [Concomitant]
     Active Substance: REMIFENTANIL HYDROCHLORIDE
     Dosage: UNK
  3. DESFLURANE [Concomitant]
     Active Substance: DESFLURANE
     Dosage: UNK
  4. ESMERON [Suspect]
     Active Substance: ROCURONIUM BROMIDE
     Indication: ENDOTRACHEAL INTUBATION
     Dosage: TOTAL DAILY DOSE 50 MG
     Route: 042

REACTIONS (4)
  - Surgery [Unknown]
  - Drug hypersensitivity [Unknown]
  - Bronchospasm [Unknown]
  - Hypersensitivity [Recovered/Resolved]

NARRATIVE: CASE EVENT DATE: 201309
